FAERS Safety Report 11409563 (Version 4)
Quarter: 2016Q4

REPORT INFORMATION
  Report Type: Report from Study
  Country: BE (occurrence: BE)
  Receive Date: 20150824
  Receipt Date: 20161018
  Transmission Date: 20170206
  Serious: Yes (Death, Hospitalization, Other)
  Sender: FDA-Public Use
  Company Number: BE-BAYER-2015-404396

PATIENT
  Age: 68 Year
  Sex: Male

DRUGS (5)
  1. ZOCOR [Concomitant]
     Active Substance: SIMVASTATIN
     Indication: HYPERLIPIDAEMIA
     Dosage: 40 MG, QD
     Dates: start: 201307, end: 20140114
  2. LISINOPRIL. [Concomitant]
     Active Substance: LISINOPRIL
     Indication: HYPERTENSION
     Dosage: UNK
     Dates: start: 201307, end: 20140114
  3. BISOPROLOL [Concomitant]
     Active Substance: BISOPROLOL
     Indication: ATRIAL FIBRILLATION
     Dosage: 5 MG, QD
     Dates: start: 201310, end: 20140114
  4. APIXABAN [Concomitant]
     Active Substance: APIXABAN
  5. REGORAFENIB [Suspect]
     Active Substance: REGORAFENIB
     Indication: COLORECTAL CANCER STAGE IV
     Dosage: 160 MG, QD
     Route: 048
     Dates: start: 20131221, end: 20140114

REACTIONS (6)
  - Aspartate aminotransferase abnormal [Fatal]
  - Asthenia [Fatal]
  - Hepatitis [Fatal]
  - Encephalopathy [None]
  - Jaundice [Fatal]
  - Alanine aminotransferase abnormal [Fatal]

NARRATIVE: CASE EVENT DATE: 20140114
